FAERS Safety Report 26169590 (Version 1)
Quarter: 2025Q4

REPORT INFORMATION
  Report Type: Report from Study
  Country: EU (occurrence: EU)
  Receive Date: 20251217
  Receipt Date: 20251217
  Transmission Date: 20260117
  Serious: Yes (Other)
  Sender: NOVARTIS
  Company Number: EU-002147023-NVSC2025IT182106

PATIENT
  Age: 28 Year
  Sex: Female
  Weight: 85 kg

DRUGS (1)
  1. COSENTYX [Suspect]
     Active Substance: SECUKINUMAB
     Indication: Hidradenitis
     Dosage: 300 MG (150MGX2), INITIAL DOSING AT WEEKS 0, 1, 2, 3, 4, FOLLOWED BY A MAINTENANCE DOSE OF 300 MG EV
     Route: 058
     Dates: start: 20250909, end: 20251104

REACTIONS (11)
  - Enteritis [Recovering/Resolving]
  - Inflammatory bowel disease [Recovering/Resolving]
  - Abdominal pain [Unknown]
  - Pyrexia [Unknown]
  - Discomfort [Unknown]
  - Oral pain [Unknown]
  - Genital pain [Unknown]
  - Oral candidiasis [Unknown]
  - Vulvovaginal candidiasis [Unknown]
  - Genital herpes [Unknown]
  - Erythema nodosum [Unknown]

NARRATIVE: CASE EVENT DATE: 20251101
